FAERS Safety Report 7052614-0 (Version None)
Quarter: 2010Q4

REPORT INFORMATION
  Report Type: 
  Country: None (occurrence: None)
  Receive Date: 20101019
  Receipt Date: 20101007
  Transmission Date: 20110411
  Serious: Yes (Other)
  Sender: FDA-Public Use
  Company Number: SE-PFIZER INC-2010062774

PATIENT
  Age: 41 Year
  Sex: Female

DRUGS (1)
  1. LYRICA [Suspect]
     Indication: POST-TRAUMATIC STRESS DISORDER
     Dosage: UNK

REACTIONS (3)
  - GOUT [None]
  - OBESITY [None]
  - OEDEMA [None]
